FAERS Safety Report 6551356-5 (Version None)
Quarter: 2010Q1

REPORT INFORMATION
  Report Type: 
  Country: None (occurrence: None)
  Receive Date: 20100120
  Receipt Date: 20100105
  Transmission Date: 20100710
  Serious: Yes (Hospitalization, Other)
  Sender: FDA-Public Use
  Company Number: AUR-APL-2010-00134

PATIENT
  Age: 35 Year
  Sex: Male

DRUGS (5)
  1. ONDANSETRON [Suspect]
     Indication: VOMITING
  2. MORPHINE [Suspect]
     Indication: PROCEDURAL PAIN
  3. METOCLOPRAMIDE [Concomitant]
  4. PROCHLORPERAZINE [Concomitant]
  5. FENTANYL [Concomitant]

REACTIONS (10)
  - COLLAPSE OF LUNG [None]
  - DIAPHRAGMATIC HERNIA [None]
  - DIAPHRAGMATIC RUPTURE [None]
  - HAEMOTHORAX [None]
  - INFUSION SITE EXTRAVASATION [None]
  - INFUSION SITE HAEMATOMA [None]
  - PERITONEAL HAEMORRHAGE [None]
  - RESPIRATORY DISTRESS [None]
  - RESPIRATORY FAILURE [None]
  - SUBCUTANEOUS EMPHYSEMA [None]
